FAERS Safety Report 25218920 (Version 3)
Quarter: 2025Q3

REPORT INFORMATION
  Report Type: Spontaneous
  Country: JP (occurrence: JP)
  Receive Date: 20250421
  Receipt Date: 20250925
  Transmission Date: 20251021
  Serious: Yes (Other)
  Sender: ALEXION PHARMACEUTICALS
  Company Number: JP-ASTRAZENECA-250036887_063610_P_1

PATIENT
  Age: 78 Year
  Sex: Female
  Weight: 46 kg

DRUGS (10)
  1. LOKELMA [Suspect]
     Active Substance: SODIUM ZIRCONIUM CYCLOSILICATE
     Indication: Hyperkalaemia
  2. CARVEDILOL [Suspect]
     Active Substance: CARVEDILOL
     Dosage: 10 MILLIGRAM, QD
  3. HERBALS [Suspect]
     Active Substance: HERBALS
     Indication: Symptomatic treatment
     Dosage: 2.5 MILLIGRAM, QD
  4. HERBALS [Suspect]
     Active Substance: HERBALS
     Dosage: 2.5 MILLIGRAM, QD
  5. NIFEDIPINE [Suspect]
     Active Substance: NIFEDIPINE
     Dosage: 20 MILLIGRAM, QD
  6. HERBALS [Suspect]
     Active Substance: HERBALS
     Dosage: 6 GRAM, TID
  7. FAMOTIDINE [Suspect]
     Active Substance: FAMOTIDINE
     Dosage: 10 MILLIGRAM, BID
  8. KAYEXALATE [Suspect]
     Active Substance: SODIUM POLYSTYRENE SULFONATE
     Dosage: 3.27 GRAM, QD
  9. BISOPROLOL FUMARATE\HYDROCHLOROTHIAZIDE [Suspect]
     Active Substance: BISOPROLOL FUMARATE\HYDROCHLOROTHIAZIDE
     Dosage: 2 MILLIGRAM, QD
  10. ANORO ELLIPTA [Suspect]
     Active Substance: UMECLIDINIUM BROMIDE\VILANTEROL TRIFENATATE
     Dosage: UNK, QD

REACTIONS (2)
  - Cardiac failure congestive [Unknown]
  - Oedema [Recovered/Resolved]

NARRATIVE: CASE EVENT DATE: 20250114
